FAERS Safety Report 4339869-8 (Version None)
Quarter: 2004Q2

REPORT INFORMATION
  Report Type: 
  Country: None (occurrence: None)
  Receive Date: 20040412
  Receipt Date: 20040331
  Transmission Date: 20050107
  Serious: Yes (Hospitalization, Other)
  Sender: FDA-Public Use
  Company Number: BE-JNJFOC-20040201607

PATIENT
  Age: 2 Year
  Sex: Male
  Weight: 11.9 kg

DRUGS (16)
  1. PROPULSID [Suspect]
     Indication: BRONCHIAL HYPERACTIVITY
     Dosage: SEE IMAGE
     Dates: start: 20030319
  2. PROPULSID [Suspect]
     Indication: GASTROOESOPHAGEAL REFLUX DISEASE
     Dosage: SEE IMAGE
     Dates: start: 20030319
  3. PROPULSID [Suspect]
     Indication: BRONCHIAL HYPERACTIVITY
     Dosage: SEE IMAGE
     Dates: start: 20030716
  4. PROPULSID [Suspect]
     Indication: GASTROOESOPHAGEAL REFLUX DISEASE
     Dosage: SEE IMAGE
     Dates: start: 20030716
  5. AUGMENTIN [Concomitant]
  6. PULMICORT [Concomitant]
  7. VENTOLIN [Concomitant]
  8. ATROVENT (IPRATROPIUM BROMIDE) AMPOULES [Concomitant]
  9. OMEPRAZOLE [Concomitant]
  10. AMOXICILLIN [Concomitant]
  11. ZANTAC [Concomitant]
  12. CECLOR [Concomitant]
  13. DUOVENT (DUOVENT) [Concomitant]
  14. ZITHROMAX [Concomitant]
  15. BRICANYL [Concomitant]
  16. CEFUROXIME AXETIL [Concomitant]

REACTIONS (6)
  - BRONCHOPNEUMONIA [None]
  - CONDITION AGGRAVATED [None]
  - DRUG INEFFECTIVE [None]
  - GASTROOESOPHAGEAL REFLUX DISEASE [None]
  - RESPIRATORY SYNCYTIAL VIRUS INFECTION [None]
  - RHINITIS [None]
